FAERS Safety Report 24015894 (Version 1)
Quarter: 2024Q2

REPORT INFORMATION
  Report Type: Spontaneous
  Country: US (occurrence: US)
  Receive Date: 20240626
  Receipt Date: 20240626
  Transmission Date: 20240716
  Serious: No
  Sender: FDA-Public Use
  Company Number: US-LEO Pharma-371446

PATIENT
  Age: 22 Year
  Sex: Female
  Weight: 100 kg

DRUGS (1)
  1. ADBRY [Suspect]
     Active Substance: TRALOKINUMAB-LDRM
     Indication: Dermatitis atopic
     Dosage: EXPIRATION DATE 31-MAY-2025, 2ML

REACTIONS (1)
  - Alopecia [Unknown]
